FAERS Safety Report 7745166-0 (Version None)
Quarter: 2011Q3

REPORT INFORMATION
  Report Type: 
  Country: None (occurrence: None)
  Receive Date: 20110907
  Receipt Date: 20110901
  Transmission Date: 20111222
  Serious: Yes (Death, Hospitalization)
  Sender: FDA-Public Use
  Company Number: 201111093

PATIENT
  Sex: Female

DRUGS (5)
  1. DILAUDID [Concomitant]
  2. PRIALT [Concomitant]
  3. BUPIVICAINE [Concomitant]
  4. CLONIDINE [Concomitant]
  5. LIORESAL [Suspect]
     Indication: MUSCLE SPASTICITY
     Dosage: 208.84 MCG, DAILY, INTRATHECAL
     Route: 039

REACTIONS (4)
  - DEVICE MALFUNCTION [None]
  - MEDICAL DEVICE COMPLICATION [None]
  - INFECTED SKIN ULCER [None]
  - DECUBITUS ULCER [None]
